FAERS Safety Report 24282749 (Version 1)
Quarter: 2024Q3

REPORT INFORMATION
  Report Type: Report from Study
  Country: ES (occurrence: ES)
  Receive Date: 20240904
  Receipt Date: 20240904
  Transmission Date: 20241017
  Serious: Yes (Hospitalization)
  Sender: MYLAN
  Company Number: None

PATIENT
  Age: 80 Year
  Sex: Female

DRUGS (4)
  1. FUROSEMIDE [Suspect]
     Active Substance: FUROSEMIDE
     Indication: Product used for unknown indication
     Dosage: UNK, TOTAL (SINGLE DOSE)
     Route: 048
     Dates: start: 20240402, end: 20240402
  2. LOSARTAN POTASSIUM [Concomitant]
     Active Substance: LOSARTAN POTASSIUM
     Dosage: 1 DOSAGE FORM, QD (1 EVERY 24 HOURS ) 28 TABLETS
     Route: 048
     Dates: start: 20240321
  3. METFORMIN [Concomitant]
     Active Substance: METFORMIN HYDROCHLORIDE
     Dosage: 1 DOSAGE FORM, BID (1 EVERY 12 HOURS), 50 TABLETS
     Route: 048
     Dates: start: 20150724
  4. MEDEBIOTIN [Concomitant]
     Dosage: 1 DOSAGE FORM, QD (1 EVERY 24 HOURS), 40 TABLETS
     Route: 048
     Dates: start: 20221215

REACTIONS (1)
  - Syncope [Recovered/Resolved]

NARRATIVE: CASE EVENT DATE: 20240402
